FAERS Safety Report 8309546-7 (Version None)
Quarter: 2012Q2

REPORT INFORMATION
  Report Type: 
  Country: None (occurrence: None)
  Receive Date: 20120425
  Receipt Date: 20120419
  Transmission Date: 20120825
  Serious: No
  Sender: FDA-Public Use
  Company Number: US-PFIZER INC-2012098619

PATIENT
  Sex: Female
  Weight: 72.562 kg

DRUGS (2)
  1. EFFEXOR [Suspect]
     Indication: DEPRESSION
     Dosage: 225 MG, DAILY (150MG AND 75MG TOGETHER)
     Dates: start: 19990101
  2. EFFEXOR [Suspect]
     Dosage: 225 MG, DAILY (150MG AND 75MG TOGETHER)

REACTIONS (4)
  - NAUSEA [None]
  - DRUG ADMINISTRATION ERROR [None]
  - VOMITING [None]
  - WITHDRAWAL SYNDROME [None]
